FAERS Safety Report 5069348-4 (Version None)
Quarter: 2006Q3

REPORT INFORMATION
  Report Type: 
  Country: None (occurrence: None)
  Receive Date: 20060714
  Receipt Date: 20060329
  Transmission Date: 20061208
  Serious: No
  Sender: FDA-Public Use
  Company Number: 2006SP001437

PATIENT
  Age: 73 Year
  Sex: Male
  Weight: 63.5036 kg

DRUGS (7)
  1. LUNESTA [Suspect]
     Indication: INSOMNIA
     Dosage: 3 MG;HS;ORAL
     Route: 048
     Dates: start: 20060327, end: 20060328
  2. METOPROLOL [Concomitant]
  3. HYDROCODONE BITARTRATE [Concomitant]
  4. VALSARTAN [Concomitant]
  5. PLAVIX [Concomitant]
  6. TAMSULOSIN HCL [Concomitant]
  7. CELEBREX [Concomitant]

REACTIONS (1)
  - DYSGEUSIA [None]
